FAERS Safety Report 12742048 (Version 1)
Quarter: 2016Q3

REPORT INFORMATION
  Report Type: Spontaneous
  Country: US (occurrence: None)
  Receive Date: 20160913
  Receipt Date: 20160913
  Transmission Date: 20161109
  Serious: Yes (Hospitalization)
  Sender: FDA-Public Use
  Company Number: US-ALSI-201600240

PATIENT
  Age: 74 Year
  Sex: Male

DRUGS (1)
  1. CARBON DIOXIDE. [Suspect]
     Active Substance: CARBON DIOXIDE
     Indication: COMPUTERISED TOMOGRAM INTESTINE
     Dosage: 11 | LITRE(S) 11 | TOTAL INTRAPERTONEAL
     Route: 033

REACTIONS (2)
  - Large intestine perforation [None]
  - Discomfort [None]
